FAERS Safety Report 8905177 (Version 1)
Quarter: 2012Q4

REPORT INFORMATION
  Report Type: 
  Country: SE (occurrence: SE)
  Receive Date: 20121109
  Receipt Date: 20121109
  Transmission Date: 20130627
  Serious: Yes (Hospitalization)
  Sender: FDA-Public Use
  Company Number: SE-PFIZER INC-2012276804

PATIENT
  Age: 74 Year
  Sex: Male
  Weight: 73.3 kg

DRUGS (4)
  1. GENOTROPIN [Suspect]
     Dosage: 0.1 mg, 1x/day, 7 injections/week
     Route: 058
     Dates: start: 20010221
  2. ATMOS [Concomitant]
     Indication: LUTEINIZING HORMONE DEFICIENCY
     Dosage: UNK
     Dates: start: 20000519
  3. ATMOS [Concomitant]
     Indication: FOLLICLE-STIMULATING HORMONE DEFICIENCY
  4. ATMOS [Concomitant]
     Indication: TESTICULAR HYPOGONADISM

REACTIONS (1)
  - Nervous system disorder [Unknown]
